FAERS Safety Report 6105302-9 (Version None)
Quarter: 2009Q1

REPORT INFORMATION
  Report Type: 
  Country: None (occurrence: None)
  Receive Date: 20090306
  Receipt Date: 20090226
  Transmission Date: 20090719
  Serious: Yes (Hospitalization)
  Sender: FDA-Public Use
  Company Number: CH-ASTRAZENECA-2009PK00700

PATIENT
  Age: 36 Year
  Sex: Female

DRUGS (5)
  1. NEXIUM [Suspect]
     Route: 048
  2. LAMICTAL [Suspect]
     Route: 048
     Dates: start: 20080901
  3. BRUFEN [Suspect]
     Route: 048
  4. TRITTICO [Concomitant]
     Route: 048
  5. ENTUMIN [Concomitant]
     Route: 048
     Dates: end: 20080901

REACTIONS (1)
  - LIVER INJURY [None]
